FAERS Safety Report 6444169-6 (Version None)
Quarter: 2009Q4

REPORT INFORMATION
  Report Type: 
  Country: None (occurrence: None)
  Receive Date: 20091118
  Receipt Date: 20091109
  Transmission Date: 20100525
  Serious: Yes (Hospitalization)
  Sender: FDA-Public Use
  Company Number: GB-JNJFOC-20091003955

PATIENT
  Sex: Female

DRUGS (2)
  1. OXYBUTYNIN CHLORIDE [Suspect]
     Route: 048
     Dates: start: 20090918, end: 20090925
  2. OXYBUTYNIN CHLORIDE [Suspect]
     Indication: ENURESIS
     Route: 048
     Dates: start: 20090918, end: 20090925

REACTIONS (3)
  - BALANCE DISORDER [None]
  - DIZZINESS [None]
  - TREMOR [None]
